FAERS Safety Report 7475118-X (Version None)
Quarter: 2011Q2

REPORT INFORMATION
  Report Type: 
  Country: None (occurrence: None)
  Receive Date: 20110512
  Receipt Date: 20110506
  Transmission Date: 20111010
  Serious: No
  Sender: FDA-Public Use
  Company Number: JP-SANOFI-AVENTIS-2011SA025066

PATIENT
  Age: 59 Year
  Sex: Male
  Weight: 62 kg

DRUGS (6)
  1. LANTUS [Suspect]
     Indication: DIABETES MELLITUS
     Route: 058
     Dates: start: 20081208, end: 20110306
  2. LANTUS [Suspect]
     Dosage: DOSE:7 UNIT(S)
     Route: 058
     Dates: start: 20110307, end: 20110410
  3. LOXONIN [Concomitant]
     Indication: HEADACHE
     Route: 048
     Dates: start: 20100701
  4. LANTUS [Suspect]
     Dosage: DOSE:5 UNIT(S)
     Route: 058
     Dates: start: 20110421, end: 20110422
  5. LANTUS [Suspect]
     Route: 058
     Dates: start: 20110411, end: 20110415
  6. LANTUS [Suspect]
     Dosage: DOSE:3 UNIT(S)
     Route: 058
     Dates: start: 20110416, end: 20110420

REACTIONS (3)
  - HEADACHE [None]
  - BACK PAIN [None]
  - ARTHRALGIA [None]
